FAERS Safety Report 25135346 (Version 1)
Quarter: 2025Q1

REPORT INFORMATION
  Report Type: Report from Study
  Country: US (occurrence: US)
  Receive Date: 20250328
  Receipt Date: 20250328
  Transmission Date: 20250409
  Serious: Yes (Hospitalization, Other)
  Sender: SANOFI AVENTIS
  Company Number: US-SA-2025SA016874

PATIENT
  Age: 66 Year
  Sex: Female

DRUGS (1)
  1. AGALSIDASE BETA [Suspect]
     Active Substance: AGALSIDASE BETA
     Indication: Fabry^s disease
     Dosage: 110 (UNIT NOT PROVIDED), QOW
     Route: 042
     Dates: start: 202411

REACTIONS (7)
  - Cardiomyopathy [Unknown]
  - Deafness [Unknown]
  - Atrial fibrillation [Unknown]
  - Transient ischaemic attack [Unknown]
  - Cardiac pacemaker insertion [Recovering/Resolving]
  - Heart valve incompetence [Unknown]
  - Tinnitus [Unknown]
